FAERS Safety Report 16239000 (Version 1)
Quarter: 2019Q2

REPORT INFORMATION
  Report Type: Spontaneous
  Country: US (occurrence: US)
  Receive Date: 20190424
  Receipt Date: 20190424
  Transmission Date: 20190711
  Serious: No
  Sender: FDA-Public Use
  Company Number: None

PATIENT
  Age: 64 Year
  Sex: Female

DRUGS (14)
  1. PRILOSEC [Concomitant]
     Active Substance: OMEPRAZOLE MAGNESIUM
  2. RENOVA [Concomitant]
     Active Substance: TRETINOIN
  3. VALACYCLOVIR [Concomitant]
     Active Substance: VALACYCLOVIR HYDROCHLORIDE
  4. PROCRIT [Suspect]
     Active Substance: ERYTHROPOIETIN
     Indication: PLASMA CELL MYELOMA
     Dosage: ?          OTHER FREQUENCY:Q WEEK;?
     Route: 058
     Dates: start: 20180913, end: 20190419
  5. CLARITHROMYC 500MG [Concomitant]
  6. HYDROMORPHON 2MG [Concomitant]
  7. CLINDAMYCIN 300MG [Concomitant]
     Active Substance: CLINDAMYCIN PHOSPHATE
  8. MULTIVIT/FL [Concomitant]
  9. POMALYST 2MG [Concomitant]
  10. BYSTOLIC 2.5 [Concomitant]
  11. DILAUDID 1MG/ML [Concomitant]
  12. ONDANSETRON 8MG [Concomitant]
     Active Substance: ONDANSETRON
  13. ZYRTEC [Concomitant]
     Active Substance: CETIRIZINE HYDROCHLORIDE
  14. THALOMID 100MG [Concomitant]

REACTIONS (1)
  - Death [None]

NARRATIVE: CASE EVENT DATE: 20190419
